FAERS Safety Report 11858876 (Version 1)
Quarter: 2015Q4

REPORT INFORMATION
  Report Type: Spontaneous
  Country: US (occurrence: US)
  Receive Date: 20151222
  Receipt Date: 20151222
  Transmission Date: 20160305
  Serious: Yes (Life-Threatening, Hospitalization, Other)
  Sender: FDA-Public Use
  Company Number: US-ASTRAZENECA-2015SF27645

PATIENT
  Age: 761 Month
  Sex: Male

DRUGS (2)
  1. BRILINTA [Suspect]
     Active Substance: TICAGRELOR
     Indication: MYOCARDIAL INFARCTION
     Route: 048
     Dates: start: 201503
  2. BRILINTA [Suspect]
     Active Substance: TICAGRELOR
     Indication: STENT PLACEMENT
     Route: 048
     Dates: start: 201503

REACTIONS (10)
  - Cerebral haemorrhage [Not Recovered/Not Resolved]
  - Weight decreased [Unknown]
  - Brain oedema [Unknown]
  - Malaise [Unknown]
  - Respiratory tract congestion [Unknown]
  - Brain injury [Unknown]
  - Cerebral thrombosis [Unknown]
  - Cerebrovascular accident [Unknown]
  - Seizure [Unknown]
  - Dyspnoea [Unknown]

NARRATIVE: CASE EVENT DATE: 201503
